FAERS Safety Report 10757248 (Version 2)
Quarter: 2015Q1

REPORT INFORMATION
  Report Type: Spontaneous
  Country: IT (occurrence: None)
  Receive Date: 20150130
  Receipt Date: 20150223
  Transmission Date: 20150721
  Serious: Yes (Other)
  Sender: FDA-Public Use
  Company Number: 2715535

PATIENT
  Age: 76 Year
  Sex: Female
  Weight: 70 kg

DRUGS (7)
  1. OXALIPLATIN. [Suspect]
     Active Substance: OXALIPLATIN
     Indication: RECTAL CANCER METASTATIC
     Dosage: CYCLICAL
     Route: 042
     Dates: start: 20140626, end: 20141211
  2. SIVASTIN [Concomitant]
     Active Substance: SIMVASTATIN
  3. LEVOFOLINIC ACID [Concomitant]
     Active Substance: LEVOLEUCOVORIN
  4. CARDURA [Concomitant]
     Active Substance: DOXAZOSIN MESYLATE
  5. FLUOROURACIL. [Suspect]
     Active Substance: FLUOROURACIL
     Indication: RECTAL CANCER METASTATIC
     Dosage: CYCLICAL
     Route: 040
     Dates: start: 20140626, end: 20141211
  6. AVASTIN [Suspect]
     Active Substance: BEVACIZUMAB
     Indication: RECTAL CANCER METASTATIC
     Dosage: CYCLICAL
     Route: 042
     Dates: start: 20140626, end: 20141211
  7. CARDICOR [Concomitant]
     Active Substance: BISOPROLOL

REACTIONS (2)
  - Hypertensive crisis [None]
  - Paraesthesia [None]

NARRATIVE: CASE EVENT DATE: 20141019
